FAERS Safety Report 8924391 (Version 1)
Quarter: 2012Q4

REPORT INFORMATION
  Report Type: Spontaneous
  Country: US (occurrence: None)
  Receive Date: 20121121
  Receipt Date: 20121121
  Transmission Date: 20130627
  Serious: Yes (Congenital Anomaly)
  Sender: FDA-Public Use
  Company Number: None

PATIENT
  Sex: Male
  Weight: 3.26 kg

DRUGS (1)
  1. KEPPRA [Suspect]
     Indication: SEIZURE

REACTIONS (15)
  - Congenital scoliosis [None]
  - Skeletal dysplasia [None]
  - Micropenis [None]
  - Maternal drugs affecting foetus [None]
  - VIIth nerve paralysis [None]
  - Hydrocephalus [None]
  - Brain malformation [None]
  - Cerebral dysgenesis [None]
  - Optic atrophy [None]
  - CHARGE syndrome [None]
  - Optic nerve hypoplasia [None]
  - Pupils unequal [None]
  - Eyelid ptosis congenital [None]
  - Dilatation ventricular [None]
  - Congenital central nervous system anomaly [None]
